FAERS Safety Report 19676047 (Version 4)
Quarter: 2021Q4

REPORT INFORMATION
  Report Type: Spontaneous
  Country: DE (occurrence: DE)
  Receive Date: 20210809
  Receipt Date: 20211001
  Transmission Date: 20220303
  Serious: Yes (Hospitalization, Other)
  Sender: FDA-Public Use
  Company Number: DE-BRISTOL-MYERS SQUIBB COMPANY-BMS-2021-075564

PATIENT
  Age: 78 Year
  Sex: Female
  Weight: 63 kg

DRUGS (7)
  1. ELIQUIS [Suspect]
     Active Substance: APIXABAN
     Dosage: 2.5 MILLIGRAM, BID
     Route: 048
  2. PREGABALIN [Suspect]
     Active Substance: PREGABALIN
     Dosage: 50 MILLIGRAM, BID
     Route: 048
  3. TORSEMIDE [Suspect]
     Active Substance: TORSEMIDE
     Dosage: 5 MILLIGRAM, BID
     Route: 048
  4. METAMIZOLE [Suspect]
     Active Substance: METAMIZOLE
     Dosage: 500 MILLIGRAM, TID
     Route: 048
  5. PANTOPRAZOLE [Concomitant]
     Active Substance: PANTOPRAZOLE
     Dosage: 40 MILLIGRAM, QD
     Route: 048
  6. ESTRIOL [Concomitant]
     Active Substance: ESTRIOL
     Dosage: 0.5 MILLIGRAM
     Route: 067
  7. CHOLECALCIFEROL [Concomitant]
     Active Substance: CHOLECALCIFEROL
     Dosage: 2000 INTERNATIONAL UNIT
     Route: 048

REACTIONS (10)
  - General physical health deterioration [Unknown]
  - Hypothermia [Unknown]
  - Hypotension [Unknown]
  - Dyspnoea [Unknown]
  - Thirst decreased [Unknown]
  - Haematuria [Unknown]
  - Dysuria [Unknown]
  - Dysphagia [Unknown]
  - Tachypnoea [Unknown]
  - Decreased appetite [Unknown]
